FAERS Safety Report 16797025 (Version 4)
Quarter: 2019Q4

REPORT INFORMATION
  Report Type: Report from Study
  Country: None (occurrence: DE)
  Receive Date: 20190911
  Receipt Date: 20191029
  Transmission Date: 20200122
  Serious: Yes (Hospitalization, Other)
  Sender: FDA-Public Use
  Company Number: DE-ABBVIE-19K-062-2918673-00

PATIENT
  Age: 61 Year
  Sex: Male

DRUGS (1)
  1. DUODOPA [Suspect]
     Active Substance: CARBIDOPA\LEVODOPA
     Indication: PARKINSON^S DISEASE
     Dosage: MD 8ML, CRD 5.4ML/H, CRN 4.5ML/H, ED 1.5ML?20 MG/ML 5 MG/ML
     Route: 050

REACTIONS (11)
  - Blood pressure fluctuation [Unknown]
  - Pneumonia aspiration [Unknown]
  - Hypophagia [Unknown]
  - Muscle spasms [Unknown]
  - Dysphagia [Unknown]
  - Cardiovascular disorder [Unknown]
  - Unresponsive to stimuli [Unknown]
  - Eye disorder [Unknown]
  - Syncope [Unknown]
  - Mobility decreased [Unknown]
  - Hypertension [Unknown]

NARRATIVE: CASE EVENT DATE: 20190907
